FAERS Safety Report 8901520 (Version 1)
Quarter: 2012Q4

REPORT INFORMATION
  Report Type: 
  Country: US (occurrence: US)
  Receive Date: 20121109
  Receipt Date: 20121109
  Transmission Date: 20130627
  Serious: Yes (Hospitalization, Other)
  Sender: FDA-Public Use
  Company Number: US-009507513-2009SP017666

PATIENT

DRUGS (2)
  1. NUVARING [Suspect]
     Indication: CONTRACEPTION
     Dosage: 1 DF, QM
     Route: 067
     Dates: start: 200605, end: 200702
  2. LODINE [Concomitant]
     Indication: PAIN
     Dosage: PRN
     Route: 048

REACTIONS (6)
  - Lung infiltration [Unknown]
  - Pulmonary embolism [Unknown]
  - Pain [Unknown]
  - Headache [Unknown]
  - Pityriasis rosea [Unknown]
  - Pleural effusion [Unknown]
